FAERS Safety Report 6373311-0 (Version None)
Quarter: 2009Q3

REPORT INFORMATION
  Report Type: 
  Country: None (occurrence: None)
  Receive Date: 20090924
  Receipt Date: 20090414
  Transmission Date: 20100115
  Serious: No
  Sender: FDA-Public Use
  Company Number: US-ASTRAZENECA-2009UW09378

PATIENT
  Age: 27 Year
  Sex: Female

DRUGS (6)
  1. SEROQUEL [Suspect]
     Dosage: 300-800 MG AT NIGHT
     Route: 048
  2. KLONOPIN [Concomitant]
  3. LAMICTAL [Concomitant]
  4. NEURONTIN [Concomitant]
  5. ROZEREM [Concomitant]
  6. FOLATE [Concomitant]

REACTIONS (2)
  - DYSPNOEA [None]
  - TACHYCARDIA [None]
